FAERS Safety Report 8791082 (Version 2)
Quarter: 2013Q2

REPORT INFORMATION
  Report Type: Spontaneous
  Country: US (occurrence: None)
  Receive Date: 20120910
  Receipt Date: 20130412
  Transmission Date: 20140414
  Serious: Yes (Other)
  Sender: FDA-Public Use
  Company Number: 2012033252

PATIENT
  Age: 58 Year
  Sex: Female
  Weight: 95.26 kg

DRUGS (18)
  1. HIZENTRA [Suspect]
     Indication: IMMUNODEFICIENCY COMMON VARIABLE
     Dosage: 2-4 SITE OVER 1-2 HOURS
     Route: 058
     Dates: start: 20120827, end: 20120827
  2. HIZENTRA [Suspect]
     Indication: INFECTION
     Dosage: 2-4 SITE OVER 1-2 HOURS
     Route: 058
     Dates: start: 20120827, end: 20120827
  3. DIPHENHYDRAMINE (DIPHENHYDRAMINE) [Concomitant]
  4. EPI-PEN (EPINEPHRINE HYDROCHLORIDE) [Concomitant]
  5. SINGULAIR [Concomitant]
  6. PLAQUENIL (HYDROXYCHLOROQUINE PHOSPHATE) [Concomitant]
  7. XYZAL [Concomitant]
  8. CIPRO (CIPROFLOXACIN) [Concomitant]
  9. CITALOPRAM (CITALOPRAM) [Concomitant]
  10. SIMVASTATIN (SIMVASTATIN) [Concomitant]
  11. LISINOPRIL (LISINOPRIL) [Concomitant]
  12. ADVAIR (SERETIDE /01420901/) [Concomitant]
  13. ALPRAZOLAM (ALPRAZOLAM) [Concomitant]
  14. LEVOTHYROXINE (LEVOTHYROXINE) [Concomitant]
  15. METHENAMINE (METHENAMINE) [Concomitant]
  16. IBUPROFEN (IBUPROFEN) [Concomitant]
  17. VITAMIN C [Concomitant]
  18. OMEPRAZOLE (OMEPRAZOLE) [Concomitant]

REACTIONS (5)
  - Systemic lupus erythematosus [None]
  - Condition aggravated [None]
  - Infusion site pruritus [None]
  - Lip pain [None]
  - Ear pain [None]
